FAERS Safety Report 10059756 (Version 1)
Quarter: 2014Q2

REPORT INFORMATION
  Report Type: Spontaneous
  Country: US (occurrence: US)
  Receive Date: 20140404
  Receipt Date: 20140404
  Transmission Date: 20141212
  Serious: No
  Sender: FDA-Public Use
  Company Number: US-GLAXOSMITHKLINE-A1039750A

PATIENT
  Sex: 0

DRUGS (2)
  1. ORLISTAT [Suspect]
     Route: 048
  2. VICTOZA [Suspect]

REACTIONS (4)
  - Diarrhoea [Recovered/Resolved]
  - Nausea [Unknown]
  - Muscle spasms [Unknown]
  - Increased appetite [Unknown]
